FAERS Safety Report 21193545 (Version 1)
Quarter: 2022Q3

REPORT INFORMATION
  Report Type: Spontaneous
  Country: US (occurrence: None)
  Receive Date: 20220810
  Receipt Date: 20220810
  Transmission Date: 20221027
  Serious: Yes (Hospitalization)
  Sender: FDA-Public Use
  Company Number: US-Unichem Pharmaceuticals (USA) Inc-UCM202208-000739

PATIENT
  Age: 71 Year
  Sex: Female

DRUGS (9)
  1. DIVALPROEX SODIUM [Suspect]
     Active Substance: DIVALPROEX SODIUM
     Indication: Schizophrenia
  2. DIVALPROEX SODIUM [Suspect]
     Active Substance: DIVALPROEX SODIUM
     Indication: Depression
  3. DIVALPROEX SODIUM [Suspect]
     Active Substance: DIVALPROEX SODIUM
     Indication: Mental status changes
  4. RISPERIDONE [Suspect]
     Active Substance: RISPERIDONE
     Indication: Schizophrenia
  5. RISPERIDONE [Suspect]
     Active Substance: RISPERIDONE
     Indication: Depression
  6. RISPERIDONE [Suspect]
     Active Substance: RISPERIDONE
     Indication: Mental status changes
  7. COGENTIN [Suspect]
     Active Substance: BENZTROPINE MESYLATE
     Indication: Schizophrenia
     Dosage: NOT PROVIDED
  8. COGENTIN [Suspect]
     Active Substance: BENZTROPINE MESYLATE
     Indication: Depression
  9. COGENTIN [Suspect]
     Active Substance: BENZTROPINE MESYLATE
     Indication: Mental status changes

REACTIONS (2)
  - Adult failure to thrive [Recovered/Resolved]
  - Hypothermia [Recovered/Resolved]
